FAERS Safety Report 8925747 (Version 7)
Quarter: 2014Q3

REPORT INFORMATION
  Report Type: Report from Study
  Country: BR (occurrence: BR)
  Receive Date: 20121126
  Receipt Date: 20140922
  Transmission Date: 20150326
  Serious: Yes (Hospitalization, Other)
  Sender: FDA-Public Use
  Company Number: BR-ROCHE-1159656

PATIENT
  Sex: Female
  Weight: 54 kg

DRUGS (4)
  1. ACLASTA [Concomitant]
     Active Substance: ZOLEDRONIC ACID
     Route: 065
  2. TOCILIZUMAB [Suspect]
     Active Substance: TOCILIZUMAB
     Indication: RHEUMATOID ARTHRITIS
     Dosage: LAST INFUSION : 01/AUG/2013 AND APR/2014
     Route: 042
     Dates: start: 20100501
  3. AZUKON [Concomitant]
     Active Substance: GLICLAZIDE
  4. METFORMIN [Concomitant]
     Active Substance: METFORMIN HYDROCHLORIDE
     Route: 065

REACTIONS (19)
  - Arthropathy [Unknown]
  - Vomiting [Unknown]
  - Ear infection [Recovered/Resolved]
  - Joint stiffness [Unknown]
  - Asthenia [Unknown]
  - Abasia [Recovered/Resolved]
  - Chills [Unknown]
  - Arthralgia [Not Recovered/Not Resolved]
  - Anaemia [Unknown]
  - Rheumatoid arthritis [Recovering/Resolving]
  - Drug dose omission [Unknown]
  - Drug ineffective [Unknown]
  - Diabetes mellitus [Recovered/Resolved]
  - Movement disorder [Unknown]
  - Immunodeficiency [Not Recovered/Not Resolved]
  - Bone disorder [Not Recovered/Not Resolved]
  - Hip deformity [Not Recovered/Not Resolved]
  - Peripheral swelling [Unknown]
  - Erythema [Unknown]

NARRATIVE: CASE EVENT DATE: 2011
